FAERS Safety Report 25749163 (Version 2)
Quarter: 2025Q4

REPORT INFORMATION
  Report Type: Spontaneous
  Country: JP (occurrence: JP)
  Receive Date: 20250902
  Receipt Date: 20251211
  Transmission Date: 20260118
  Serious: Yes (Other)
  Sender: AMGEN
  Company Number: JP-AMGEN-JPNSP2025170503

PATIENT
  Age: 8 Decade
  Sex: Male

DRUGS (1)
  1. BLINATUMOMAB [Suspect]
     Active Substance: BLINATUMOMAB
     Indication: B-cell type acute leukaemia
     Dosage: UNK
     Route: 065

REACTIONS (2)
  - B-cell type acute leukaemia [Unknown]
  - Leukaemic infiltration extramedullary [Unknown]
